FAERS Safety Report 6191939-8 (Version None)
Quarter: 2009Q2

REPORT INFORMATION
  Report Type: 
  Country: None (occurrence: None)
  Receive Date: 20090515
  Receipt Date: 20090507
  Transmission Date: 20091009
  Serious: Yes (Death, Life-Threatening, Other)
  Sender: FDA-Public Use
  Company Number: A0780565A

PATIENT
  Age: 79 Year
  Sex: Male

DRUGS (15)
  1. COREG [Suspect]
     Indication: CARDIOMYOPATHY
     Dosage: 3.125MG TWICE PER DAY
     Route: 048
     Dates: start: 20050301, end: 20090405
  2. AVODART [Suspect]
     Indication: BENIGN PROSTATIC HYPERPLASIA
     Dosage: .5MG PER DAY
     Route: 048
  3. PLAVIX [Concomitant]
  4. DIGOXIN [Concomitant]
  5. LISINOPRIL [Concomitant]
  6. FUROSEMIDE [Concomitant]
  7. UNSPECIFIED MEDICATION [Concomitant]
  8. CARBIDOPA AND LEVODOPA [Concomitant]
  9. INSPRA [Concomitant]
  10. ASPIRIN [Concomitant]
  11. VITAMIN B-12 [Concomitant]
  12. FOLIC ACID [Concomitant]
  13. CRESTOR [Concomitant]
  14. OMEPRAZOLE [Concomitant]
  15. VITAMINS [Concomitant]

REACTIONS (2)
  - CARDIAC ARREST [None]
  - CARDIOMYOPATHY [None]
